FAERS Safety Report 9285911 (Version 1)
Quarter: 2013Q2

REPORT INFORMATION
  Report Type: Spontaneous
  Country: US (occurrence: US)
  Receive Date: 20130513
  Receipt Date: 20130513
  Transmission Date: 20140414
  Serious: No
  Sender: FDA-Public Use
  Company Number: US-PFIZER INC-2013144666

PATIENT
  Age: 66 Year
  Sex: Female
  Weight: 79.4 kg

DRUGS (1)
  1. LEVOXYL [Suspect]
     Indication: THYROID DISORDER
     Dosage: (75MCG AND 88MCG ALTERNATIVELY)

REACTIONS (2)
  - Malaise [Unknown]
  - Incorrect dose administered [Unknown]
